FAERS Safety Report 9740366 (Version 1)
Quarter: 2013Q4

REPORT INFORMATION
  Report Type: Spontaneous
  Country: CH (occurrence: CH)
  Receive Date: 20131209
  Receipt Date: 20131209
  Transmission Date: 20140711
  Serious: Yes (Death, Other)
  Sender: FDA-Public Use
  Company Number: CH-TEVA-447849ISR

PATIENT
  Age: 81 Year
  Sex: Female

DRUGS (1)
  1. METFORMIN [Suspect]
     Indication: TYPE 2 DIABETES MELLITUS
     Dosage: LONG TERM
     Route: 048

REACTIONS (8)
  - Circulatory collapse [Fatal]
  - Hepatitis toxic [Fatal]
  - Lactic acidosis [Fatal]
  - Renal failure acute [Fatal]
  - Rhabdomyolysis [Fatal]
  - Hepatic failure [Unknown]
  - Hypothermia [Unknown]
  - Confusional state [Unknown]
